FAERS Safety Report 7419647-3 (Version None)
Quarter: 2011Q2

REPORT INFORMATION
  Report Type: 
  Country: None (occurrence: None)
  Receive Date: 20110418
  Receipt Date: 20110408
  Transmission Date: 20111010
  Serious: Yes (Hospitalization)
  Sender: FDA-Public Use
  Company Number: US-US-EMD SERONO, INC.-232301J10USA

PATIENT
  Sex: Female

DRUGS (8)
  1. MAXALT [Concomitant]
     Indication: MIGRAINE
  2. OMPEPRAZOLE [Concomitant]
     Indication: REFLUX GASTRITIS
  3. SERTRALINE HYDROCHLORIDE [Concomitant]
     Indication: DEPRESSION
  4. REBIF [Suspect]
     Indication: MULTIPLE SCLEROSIS
     Route: 058
     Dates: start: 20091125
  5. GABAPENTIN [Concomitant]
     Indication: CONVULSION
  6. PROPRANOLOL [Concomitant]
     Indication: MIGRAINE
  7. ALPRAZOLAM [Concomitant]
     Indication: DEPRESSION
  8. VITAMIN B-12 [Concomitant]

REACTIONS (2)
  - PNEUMONIA [None]
  - THYROIDITIS [None]
